FAERS Safety Report 4282927-7 (Version None)
Quarter: 2004Q1

REPORT INFORMATION
  Report Type: 
  Country: None (occurrence: None)
  Receive Date: 20040130
  Receipt Date: 20010803
  Transmission Date: 20041129
  Serious: Yes (Life-Threatening, Hospitalization, Other)
  Sender: FDA-Public Use
  Company Number: PHEH2001US06621

PATIENT
  Age: 19 Year
  Sex: Female
  Weight: 35 kg

DRUGS (8)
  1. MIDAZOLAM HCL [Concomitant]
  2. FENTANYL [Concomitant]
  3. THIOPENTAL [Concomitant]
  4. ALBUMIN (HUMAN) [Concomitant]
  5. SIMULECT [Suspect]
     Indication: RENAL TRANSPLANT
     Dosage: 20 MG, ONCE/SINGLE
     Route: 042
     Dates: start: 20010723, end: 20010723
  6. SOLU-MEDROL [Concomitant]
  7. CELLCEPT [Concomitant]
  8. NEORAL [Concomitant]

REACTIONS (13)
  - ACUTE RESPIRATORY DISTRESS SYNDROME [None]
  - BRADYCARDIA [None]
  - CARDIAC ARREST [None]
  - CARDIAC FAILURE [None]
  - CARDIOGENIC SHOCK [None]
  - DISSEMINATED INTRAVASCULAR COAGULATION [None]
  - HEPATIC FAILURE [None]
  - MULTI-ORGAN FAILURE [None]
  - PERICARDIAL HAEMORRHAGE [None]
  - PROCEDURAL HYPOTENSION [None]
  - RENAL FAILURE [None]
  - TRANSPLANT FAILURE [None]
  - VENTRICULAR FIBRILLATION [None]
